FAERS Safety Report 23623660 (Version 1)
Quarter: 2024Q1

REPORT INFORMATION
  Report Type: Spontaneous
  Country: CA (occurrence: CA)
  Receive Date: 20240312
  Receipt Date: 20240312
  Transmission Date: 20240410
  Serious: Yes (Other)
  Sender: FDA-Public Use
  Company Number: CA-ANIPHARMA-2024-CA-001500

PATIENT
  Age: 59 Year
  Sex: Female

DRUGS (29)
  1. CANDESARTAN CILEXETIL [Suspect]
     Active Substance: CANDESARTAN CILEXETIL
     Indication: Product used for unknown indication
     Dosage: 8 MG QD
     Route: 048
  2. CORTISONE [Concomitant]
     Active Substance: CORTISONE
  3. CYCLOBENZAPRINE [Concomitant]
     Active Substance: CYCLOBENZAPRINE
     Route: 048
  4. DEXTROAMPHETAMINE [Concomitant]
     Active Substance: DEXTROAMPHETAMINE
  5. DICLOFENAC [Concomitant]
     Active Substance: DICLOFENAC
     Route: 061
  6. ESOMEPRAZOLE MAGNESIUM\NAPROXEN [Concomitant]
     Active Substance: ESOMEPRAZOLE MAGNESIUM\NAPROXEN
  7. ESTRADIOL [Concomitant]
     Active Substance: ESTRADIOL
  8. GABAPENTIN [Concomitant]
     Active Substance: GABAPENTIN
     Route: 048
  9. HYDROXYCHLOROQUINE [Concomitant]
     Active Substance: HYDROXYCHLOROQUINE
  10. LYRICA [Concomitant]
     Active Substance: PREGABALIN
     Route: 048
  11. MELOXICAM [Concomitant]
     Active Substance: MELOXICAM
     Route: 048
  12. OMEPRAZOLE [Suspect]
     Active Substance: OMEPRAZOLE
  13. METHYLPREDNISOLONE ACETATE [Concomitant]
     Active Substance: METHYLPREDNISOLONE ACETATE
     Route: 058
  14. NAPROXEN [Concomitant]
     Active Substance: NAPROXEN
  15. NEURONTIN [Concomitant]
     Active Substance: GABAPENTIN
  16. OXYCODONE [Concomitant]
     Active Substance: OXYCODONE\OXYCODONE HYDROCHLORIDE
     Route: 048
  17. PREDNISONE [Concomitant]
     Active Substance: PREDNISONE
  18. ZOLPIDEM TARTRATE [Concomitant]
     Active Substance: ZOLPIDEM TARTRATE
  19. SULFASALAZINE [Concomitant]
     Active Substance: SULFASALAZINE
     Route: 048
  20. TIZANIDINE HYDROCHLORIDE [Concomitant]
     Active Substance: TIZANIDINE HYDROCHLORIDE
     Route: 048
  21. TRAZODONE [Concomitant]
     Active Substance: TRAZODONE HYDROCHLORIDE
  22. TYLENOL [Concomitant]
     Active Substance: ACETAMINOPHEN
  23. ERELZI [Suspect]
     Active Substance: ETANERCEPT-SZZS
     Dosage: 50 MG WEEK
     Route: 048
  24. VORTIOXETINE [Suspect]
     Active Substance: VORTIOXETINE
     Dosage: 35 MG QD
     Route: 048
  25. ZOLPIDEM [Suspect]
     Active Substance: ZOLPIDEM TARTRATE
  26. DICLOFENAC SODIUM [Concomitant]
     Active Substance: DICLOFENAC\DICLOFENAC SODIUM
  27. TRAMADOL HYDROCHLORIDE [Concomitant]
     Active Substance: TRAMADOL HYDROCHLORIDE
  28. BACLOFEN [Concomitant]
     Active Substance: BACLOFEN
  29. CELEBREX [Concomitant]
     Active Substance: CELECOXIB

REACTIONS (2)
  - Psoriatic arthropathy [Unknown]
  - Drug ineffective [Unknown]
